FAERS Safety Report 7311236-4 (Version None)
Quarter: 2011Q1

REPORT INFORMATION
  Report Type: 
  Country: None (occurrence: None)
  Receive Date: 20110224
  Receipt Date: 20110217
  Transmission Date: 20110831
  Serious: Yes (Death)
  Sender: FDA-Public Use
  Company Number: US-ROCHE-761468

PATIENT

DRUGS (4)
  1. PROPARACAINE HCL [Concomitant]
     Dosage: BEFORE BEVACIZUMAB
  2. POVIDONE IODINE [Concomitant]
     Dosage: BEFORE BEVACIZUMAB.
  3. BEVACIZUMAB [Suspect]
     Indication: RETINOPATHY OF PREMATURITY
     Route: 031
  4. POVIDONE IODINE [Concomitant]
     Dosage: AFTER BEVACIZUMAB.

REACTIONS (1)
  - MULTI-ORGAN FAILURE [None]
